FAERS Safety Report 6681827-2 (Version None)
Quarter: 2010Q2

REPORT INFORMATION
  Report Type: 
  Country: None (occurrence: None)
  Receive Date: 20100414
  Receipt Date: 20100401
  Transmission Date: 20101027
  Serious: Yes (Other)
  Sender: FDA-Public Use
  Company Number: PHEH2009US02019

PATIENT
  Sex: Male

DRUGS (1)
  1. ZOMETA [Suspect]
     Indication: NEOPLASM MALIGNANT

REACTIONS (10)
  - BLOOD GLUCOSE INCREASED [None]
  - DEFORMITY [None]
  - DISCOMFORT [None]
  - DYSPHAGIA [None]
  - METASTASES TO BONE [None]
  - METASTATIC RENAL CELL CARCINOMA [None]
  - NEPHRECTOMY [None]
  - OSTEOARTHRITIS [None]
  - OSTEONECROSIS [None]
  - PAIN [None]
